FAERS Safety Report 4441557-4 (Version None)
Quarter: 2004Q3

REPORT INFORMATION
  Report Type: 
  Country: None (occurrence: None)
  Receive Date: 20040728
  Receipt Date: 20040223
  Transmission Date: 20050211
  Serious: No
  Sender: FDA-Public Use
  Company Number: US_0403101182

PATIENT
  Age: 17 Year
  Sex: Female
  Weight: 61 kg

DRUGS (5)
  1. STRATTERA [Suspect]
     Indication: ATTENTION DEFICIT/HYPERACTIVITY DISORDER
     Dosage: 80 MG/1DAY
     Dates: start: 20040211
  2. CONCERTA [Concomitant]
  3. RANITIDINE [Concomitant]
  4. ZYRTEC [Concomitant]
  5. FLONASE [Concomitant]

REACTIONS (4)
  - DECREASED APPETITE [None]
  - DRUG EFFECT DECREASED [None]
  - INCREASED APPETITE [None]
  - MYDRIASIS [None]
